FAERS Safety Report 18329971 (Version 12)
Quarter: 2023Q1

REPORT INFORMATION
  Report Type: Spontaneous
  Country: US (occurrence: US)
  Receive Date: 20200930
  Receipt Date: 20230308
  Transmission Date: 20230417
  Serious: Yes (Hospitalization, Other)
  Sender: FDA-Public Use
  Company Number: US-SA-2020SA265201

PATIENT
  Age: 77 Year
  Sex: Female

DRUGS (86)
  1. DUPIXENT [Suspect]
     Active Substance: DUPILUMAB
     Indication: Dermatitis atopic
     Dosage: 300 MG, QOW
     Route: 058
     Dates: start: 20200821
  2. DUPIXENT [Suspect]
     Active Substance: DUPILUMAB
     Indication: Asthma
  3. AMITRIPTYLINE HYDROCHLORIDE [Concomitant]
     Active Substance: AMITRIPTYLINE HYDROCHLORIDE
     Dosage: UNK
     Route: 065
  4. AMITRIPTYLINE HYDROCHLORIDE [Concomitant]
     Active Substance: AMITRIPTYLINE HYDROCHLORIDE
  5. LASIX [Concomitant]
     Active Substance: FUROSEMIDE
     Dosage: UNK
     Route: 065
  6. LASIX [Concomitant]
     Active Substance: FUROSEMIDE
  7. OFEV [Concomitant]
     Active Substance: NINTEDANIB
  8. OFEV [Concomitant]
     Active Substance: NINTEDANIB
  9. VITAMIN B COMPLEX [Concomitant]
     Active Substance: CYANOCOBALAMIN\DEXPANTHENOL\NIACINAMIDE\PYRIDOXINE HYDROCHLORIDE\RIBOFLAVIN 5^-PHOSPHATE SODIUM\THIA
  10. VITAMIN B COMPLEX [Concomitant]
     Active Substance: CYANOCOBALAMIN\DEXPANTHENOL\NIACINAMIDE\PYRIDOXINE HYDROCHLORIDE\RIBOFLAVIN 5^-PHOSPHATE SODIUM\THIA
  11. FISH OIL [Concomitant]
     Active Substance: FISH OIL
  12. FISH OIL [Concomitant]
     Active Substance: FISH OIL
  13. MAGNESIUM [Concomitant]
     Active Substance: MAGNESIUM
  14. MAGNESIUM [Concomitant]
     Active Substance: MAGNESIUM
  15. VITAMIN C [Concomitant]
     Active Substance: ASCORBIC ACID
  16. VITAMIN C [Concomitant]
     Active Substance: ASCORBIC ACID
  17. VITAMIN D3 [Concomitant]
     Active Substance: CHOLECALCIFEROL
  18. VITAMIN D3 [Concomitant]
     Active Substance: CHOLECALCIFEROL
  19. ZINC [Concomitant]
     Active Substance: ZINC
  20. ZINC [Concomitant]
     Active Substance: ZINC
  21. MUCINEX [Concomitant]
     Active Substance: GUAIFENESIN
     Dosage: UNK, Q12H
  22. MUCINEX [Concomitant]
     Active Substance: GUAIFENESIN
  23. MINERALS\VITAMINS [Concomitant]
     Active Substance: MINERALS\VITAMINS
  24. MINERALS\VITAMINS [Concomitant]
     Active Substance: MINERALS\VITAMINS
  25. SENNA PLUS [SENNA ALEXANDRINA] [Concomitant]
  26. SENNA PLUS [SENNA ALEXANDRINA] [Concomitant]
  27. TYLENOL [Concomitant]
     Active Substance: ACETAMINOPHEN
     Dosage: UNK
     Route: 065
  28. TYLENOL [Concomitant]
     Active Substance: ACETAMINOPHEN
  29. LACTULOSE [Concomitant]
     Active Substance: LACTULOSE
     Dosage: UNK
     Route: 065
  30. LACTULOSE [Concomitant]
     Active Substance: LACTULOSE
  31. MAGNESIUM OXIDE [Concomitant]
     Active Substance: MAGNESIUM OXIDE
     Route: 065
  32. TRAMADOL HYDROCHLORIDE [Concomitant]
     Active Substance: TRAMADOL HYDROCHLORIDE
     Route: 065
  33. SENNA LAXATIVE [Concomitant]
     Active Substance: SENNOSIDES
     Route: 065
  34. FOLIC ACID [Concomitant]
     Active Substance: FOLIC ACID
     Route: 065
  35. AMITIZA [Concomitant]
     Active Substance: LUBIPROSTONE
     Route: 065
  36. MISOPROSTOL [Concomitant]
     Active Substance: MISOPROSTOL
     Route: 065
  37. ZOFRAN [Concomitant]
     Active Substance: ONDANSETRON HYDROCHLORIDE
     Route: 065
  38. ZOFRAN [Concomitant]
     Active Substance: ONDANSETRON HYDROCHLORIDE
  39. COCONUT OIL [Concomitant]
     Active Substance: COCONUT OIL
     Route: 065
  40. NASAFLO NETI POT [SODIUM BICARBONATE] [Concomitant]
     Route: 065
  41. MELOXICAM [Concomitant]
     Active Substance: MELOXICAM
     Route: 065
  42. CORTIZONE 10 [Concomitant]
     Active Substance: HYDROCORTISONE
  43. ABILIFY [Concomitant]
     Active Substance: ARIPIPRAZOLE
  44. ABILIFY [Concomitant]
     Active Substance: ARIPIPRAZOLE
  45. ALBUTEROL SULFATE [Concomitant]
     Active Substance: ALBUTEROL SULFATE
  46. CHLORASEPTIC SORE THROAT [Concomitant]
     Active Substance: PHENOL
  47. CLONAZEPAM [Concomitant]
     Active Substance: CLONAZEPAM
  48. CLONAZEPAM [Concomitant]
     Active Substance: CLONAZEPAM
  49. DILAUDID [Concomitant]
     Active Substance: HYDROMORPHONE HYDROCHLORIDE
  50. DULCOLAX STOOL SOFTENER [Concomitant]
     Active Substance: DOCUSATE SODIUM
  51. EFFEXOR XR [Concomitant]
     Active Substance: VENLAFAXINE HYDROCHLORIDE
  52. ESTRADIOL [Concomitant]
     Active Substance: ESTRADIOL
  53. LEXAPRO [Concomitant]
     Active Substance: ESCITALOPRAM OXALATE
  54. LOPERAMIDE [Concomitant]
     Active Substance: LOPERAMIDE
  55. OMEPRAZOLE [Concomitant]
     Active Substance: OMEPRAZOLE
  56. OXYGEN [Concomitant]
     Active Substance: OXYGEN
  57. DIETARY SUPPLEMENT\PROBIOTICS [Concomitant]
     Active Substance: DIETARY SUPPLEMENT\PROBIOTICS
  58. PROGESTERONE [Concomitant]
     Active Substance: PROGESTERONE
  59. QVAR [Concomitant]
     Active Substance: BECLOMETHASONE DIPROPIONATE
  60. SINGULAIR [Concomitant]
     Active Substance: MONTELUKAST SODIUM
  61. SINGULAIR [Concomitant]
     Active Substance: MONTELUKAST SODIUM
  62. SYNTHROID [Concomitant]
     Active Substance: LEVOTHYROXINE SODIUM
  63. CLARITIN-D NOS [Concomitant]
     Active Substance: LORATADINE\PSEUDOEPHEDRINE SULFATE
     Route: 065
  64. ALEVE [Concomitant]
     Active Substance: NAPROXEN SODIUM
  65. VITAMINS NOS [Concomitant]
     Active Substance: VITAMINS
  66. CLARITIN-D 12 HOUR [Concomitant]
     Active Substance: LORATADINE\PSEUDOEPHEDRINE SULFATE
  67. ALLEGRA ALLERGY [Concomitant]
     Active Substance: FEXOFENADINE HYDROCHLORIDE
  68. BENADRYL ITCH STOPPING CREAM [Concomitant]
  69. EFFEXOR [Concomitant]
     Active Substance: VENLAFAXINE HYDROCHLORIDE
     Dosage: UNK
  70. EPIPEN [Concomitant]
     Active Substance: EPINEPHRINE
     Dosage: UNK
  71. FLONASE ALLERGY RELIEF [Concomitant]
     Active Substance: FLUTICASONE PROPIONATE
  72. GLUCOSAMINE CHONDROITIN ADVANCED [Concomitant]
     Dosage: UNK
  73. HYDROMORPHONE HCL [Concomitant]
     Active Substance: HYDROMORPHONE HYDROCHLORIDE
  74. AMOXICILLIN\CLAVULANATE POTASSIUM [Concomitant]
     Active Substance: AMOXICILLIN\CLAVULANATE POTASSIUM
  75. DOXYCYCLINE [Concomitant]
     Active Substance: DOXYCYCLINE
     Dosage: UNK
  76. NYSTATIN [Concomitant]
     Active Substance: NYSTATIN
     Dosage: UNK
  77. TRIAMCINOLONE [Concomitant]
     Active Substance: TRIAMCINOLONE
     Dosage: UNK
  78. CLOBETASOL PROPIONATE [Concomitant]
     Active Substance: CLOBETASOL PROPIONATE
  79. DOTTI [Concomitant]
     Active Substance: ESTRADIOL
     Dosage: UNK
  80. ARIPIPRAZOLE [Concomitant]
     Active Substance: ARIPIPRAZOLE
  81. ESCITALOPRAM OXALATE [Concomitant]
     Active Substance: ESCITALOPRAM OXALATE
  82. ONDANSETRON HCL [Concomitant]
     Active Substance: ONDANSETRON HYDROCHLORIDE
  83. ALBUTEROL SULFATE [Concomitant]
     Active Substance: ALBUTEROL SULFATE
  84. FLUTICASONE PROPIONATE [Concomitant]
     Active Substance: FLUTICASONE PROPIONATE
  85. AZITHROMYCIN [Concomitant]
     Active Substance: AZITHROMYCIN
  86. MONTELUKAST SODIUM [Concomitant]
     Active Substance: MONTELUKAST SODIUM
     Dosage: UNK

REACTIONS (37)
  - Cellulitis [Unknown]
  - Suicidal ideation [Unknown]
  - Fall [Not Recovered/Not Resolved]
  - Facial bones fracture [Not Recovered/Not Resolved]
  - Upper limb fracture [Not Recovered/Not Resolved]
  - Rib fracture [Not Recovered/Not Resolved]
  - Fear of death [Not Recovered/Not Resolved]
  - Bronchitis [Not Recovered/Not Resolved]
  - Dyspnoea [Not Recovered/Not Resolved]
  - Cough [Not Recovered/Not Resolved]
  - Gait disturbance [Not Recovered/Not Resolved]
  - Hypersomnia [Not Recovered/Not Resolved]
  - Pain [Unknown]
  - Insomnia [Unknown]
  - Decreased appetite [Unknown]
  - Thought blocking [Not Recovered/Not Resolved]
  - Speech disorder [Not Recovered/Not Resolved]
  - Neck pain [Recovering/Resolving]
  - Fatigue [Unknown]
  - Skin infection [Unknown]
  - Rash [Unknown]
  - Contusion [Unknown]
  - Pain [Not Recovered/Not Resolved]
  - Nausea [Unknown]
  - Sinus congestion [Unknown]
  - Eczema [Unknown]
  - Pruritus [Unknown]
  - Dry skin [Unknown]
  - Sleep disorder [Unknown]
  - Synovial cyst [Unknown]
  - Arthropod bite [Unknown]
  - Swelling [Unknown]
  - Pain in extremity [Unknown]
  - Infusion related reaction [Unknown]
  - Pruritus [Unknown]
  - Therapeutic response shortened [Unknown]
  - Injection site erythema [Recovering/Resolving]

NARRATIVE: CASE EVENT DATE: 20200101
